FAERS Safety Report 17200313 (Version 1)
Quarter: 2019Q4

REPORT INFORMATION
  Report Type: Spontaneous
  Country: US (occurrence: US)
  Receive Date: 20191226
  Receipt Date: 20191226
  Transmission Date: 20200122
  Serious: No
  Sender: FDA-Public Use
  Company Number: US-GLAXOSMITHKLINE-US2019231588

PATIENT
  Sex: Female

DRUGS (3)
  1. ASPIRINE [Concomitant]
     Active Substance: ASPIRIN
     Indication: PRODUCT USED FOR UNKNOWN INDICATION
     Dosage: UNK
     Route: 065
  2. TRELEGY ELLIPTA [Suspect]
     Active Substance: FLUTICASONE FUROATE\UMECLIDINIUM BROMIDE\VILANTEROL TRIFENATATE
     Indication: PRODUCT USED FOR UNKNOWN INDICATION
     Dosage: 1 PUFF(S), QD
     Route: 065
     Dates: start: 20191204
  3. NAPROXEN. [Suspect]
     Active Substance: NAPROXEN
     Indication: PAIN
     Dosage: 220 MG (AS NEEDED)
     Route: 065
     Dates: end: 20191215

REACTIONS (7)
  - Swelling [Recovering/Resolving]
  - Swelling of eyelid [Recovering/Resolving]
  - Peripheral swelling [Recovering/Resolving]
  - Venous operation [Unknown]
  - Joint swelling [Recovering/Resolving]
  - Pain in extremity [Unknown]
  - Middle insomnia [Unknown]
